FAERS Safety Report 23601919 (Version 2)
Quarter: 2024Q3

REPORT INFORMATION
  Report Type: Report from Study
  Country: US (occurrence: US)
  Receive Date: 20240306
  Receipt Date: 20240912
  Transmission Date: 20241016
  Serious: Yes (Death, Other)
  Sender: GILEAD
  Company Number: US-GILEAD-2024-0664639

PATIENT
  Age: 72 Year
  Sex: Male

DRUGS (7)
  1. AXICABTAGENE CILOLEUCEL [Suspect]
     Active Substance: AXICABTAGENE CILOLEUCEL
     Indication: B-cell lymphoma
     Route: 065
  2. AXICABTAGENE CILOLEUCEL [Suspect]
     Active Substance: AXICABTAGENE CILOLEUCEL
     Indication: Non-Hodgkin^s lymphoma
  3. RITUXIMAB [Concomitant]
     Active Substance: RITUXIMAB
  4. GEMCITABINE [Concomitant]
     Active Substance: GEMCITABINE
  5. OXALIPLATIN [Concomitant]
     Active Substance: OXALIPLATIN
  6. CYCLOPHOSPHAMIDE [Concomitant]
     Active Substance: CYCLOPHOSPHAMIDE
  7. FLUDARABINE [Concomitant]
     Active Substance: FLUDARABINE PHOSPHATE

REACTIONS (1)
  - Myelodysplastic syndrome [Fatal]
